FAERS Safety Report 10378762 (Version 3)
Quarter: 2014Q4

REPORT INFORMATION
  Report Type: Spontaneous
  Country: US (occurrence: US)
  Receive Date: 20140812
  Receipt Date: 20141126
  Transmission Date: 20150528
  Serious: Yes (Hospitalization, Other)
  Sender: FDA-Public Use
  Company Number: US-GILEAD-2014-0111502

PATIENT
  Age: 70 Year
  Sex: Female

DRUGS (2)
  1. LETAIRIS [Suspect]
     Active Substance: AMBRISENTAN
     Indication: PRODUCT USED FOR UNKNOWN INDICATION
     Dosage: 10 MG, QD
     Dates: start: 20140702
  2. WARFARIN [Concomitant]
     Active Substance: WARFARIN

REACTIONS (1)
  - Cholecystectomy [Recovered/Resolved]

NARRATIVE: CASE EVENT DATE: 20140806
